FAERS Safety Report 9091261 (Version 1)
Quarter: 2013Q1

REPORT INFORMATION
  Report Type: Report from Study
  Country: US (occurrence: US)
  Receive Date: 20130201
  Receipt Date: 20130201
  Transmission Date: 20140127
  Serious: No
  Sender: FDA-Public Use
  Company Number: US-ABBOTT-12P-163-0987865-00

PATIENT
  Age: 52 Year
  Sex: Male

DRUGS (5)
  1. HUMIRA [Suspect]
     Indication: PSORIASIS
     Dosage: LOADING DOSE
     Dates: start: 20120913
  2. TACLONEX [Concomitant]
     Indication: PSORIASIS
     Dosage: DAILY, ALTERNATED
  3. CLOBETASOL [Concomitant]
     Indication: PSORIASIS
     Dosage: DAILY
  4. TRAMADOL [Concomitant]
     Indication: BACK PAIN
  5. PROTONATE [Concomitant]
     Indication: PSORIASIS

REACTIONS (4)
  - Nerve compression [Unknown]
  - Back injury [Not Recovered/Not Resolved]
  - Back pain [Not Recovered/Not Resolved]
  - Intervertebral disc degeneration [Unknown]
